FAERS Safety Report 9845581 (Version 2)
Quarter: 2014Q1

REPORT INFORMATION
  Report Type: Report from Study
  Country: US (occurrence: US)
  Receive Date: 20140127
  Receipt Date: 20140321
  Transmission Date: 20141002
  Serious: Yes (Death, Other)
  Sender: FDA-Public Use
  Company Number: US-ABBVIE-14P-163-1192884-00

PATIENT
  Age: 58 Year
  Sex: Male
  Weight: 104 kg

DRUGS (37)
  1. GENGRAF [Suspect]
     Indication: PROPHYLAXIS AGAINST TRANSPLANT REJECTION
     Dosage: AT 5 AM AND 5 PM
     Route: 048
  2. GENGRAF [Suspect]
     Indication: PROPHYLAXIS AGAINST TRANSPLANT REJECTION
     Dosage: AT 5 AM AND 5 PM
     Route: 048
  3. ALBUTEROL [Concomitant]
     Indication: CHRONIC OBSTRUCTIVE PULMONARY DISEASE
     Dosage: ACTUATION INHALER INTO THE LUNGS
  4. NORVASC [Concomitant]
     Indication: PRODUCT USED FOR UNKNOWN INDICATION
     Route: 048
  5. ASPIRIN [Concomitant]
     Indication: CARDIAC DISORDER
     Route: 048
     Dates: end: 20130616
  6. CINNAMON BARK [Concomitant]
     Indication: PRODUCT USED FOR UNKNOWN INDICATION
     Route: 048
  7. PLAVIX [Concomitant]
     Indication: ANTICOAGULANT THERAPY
     Route: 048
     Dates: end: 20130616
  8. FERROUS SULFATE [Concomitant]
     Indication: IRON DEFICIENCY ANAEMIA
     Dosage: 325 MG (65 MG IRON)
     Route: 048
  9. ADVAIR [Concomitant]
     Indication: CHRONIC OBSTRUCTIVE PULMONARY DISEASE
     Dosage: 250-50 MCG/DOSE DISKUS INHALER PUFF INTO LUNGS
  10. ADVAIR [Concomitant]
     Indication: BRONCHITIS CHRONIC
  11. LASIX [Concomitant]
     Indication: OEDEMA
     Route: 048
  12. NEURONTIN [Concomitant]
     Indication: PRODUCT USED FOR UNKNOWN INDICATION
  13. ROBITUSSIN DM [Concomitant]
     Indication: COUGH
     Dosage: 10-100 MG/5 ML EVERY 4 HOURS AS NEEDED
     Route: 048
  14. ANTIVERT [Concomitant]
     Indication: VERTIGO
     Route: 048
  15. MULTIVITAMIN [Concomitant]
     Indication: PRODUCT USED FOR UNKNOWN INDICATION
     Route: 048
  16. NITROSTAT [Concomitant]
     Indication: CHEST PAIN
     Dosage: AS DIRECTED
     Route: 060
  17. LOVAZA [Concomitant]
     Indication: HYPERTRIGLYCERIDAEMIA
     Route: 048
  18. PRILOSEC [Concomitant]
     Indication: GASTROOESOPHAGEAL REFLUX DISEASE
     Route: 048
  19. ROXICET [Concomitant]
     Indication: PAIN
     Dosage: 5-325 MG PER TABLET
  20. PAXIL [Concomitant]
     Indication: ANXIETY
     Route: 048
  21. LANTUS [Concomitant]
     Indication: PRODUCT USED FOR UNKNOWN INDICATION
     Dosage: PEN 100U/ML; 20U TOTAL (0.2MLS), NIGHTLY
  22. NOVOLOG [Concomitant]
     Indication: PRODUCT USED FOR UNKNOWN INDICATION
     Dosage: PEN 100U/ML SLIDESCALE 4-16U W/MEALS+QHS
  23. ZOCOR [Concomitant]
     Indication: PRODUCT USED FOR UNKNOWN INDICATION
  24. FLOMAX [Concomitant]
     Indication: BENIGN PROSTATIC HYPERPLASIA
     Dosage: 24 HOUR CAPSULE EVERY EVENING
     Route: 048
  25. SPIRIVA [Concomitant]
     Indication: CHRONIC OBSTRUCTIVE PULMONARY DISEASE
     Dosage: INTO LUNGS
     Route: 055
  26. SPIRIVA [Concomitant]
     Indication: BRONCHOSPASM
  27. OCEAN [Concomitant]
     Indication: NASAL CONGESTION
     Dosage: SPRAY
     Route: 045
  28. IMURAN [Concomitant]
     Indication: PROPHYLAXIS AGAINST TRANSPLANT REJECTION
     Dosage: EVERY EVENING
     Route: 048
  29. ZETIA [Concomitant]
     Indication: HYPERCHOLESTEROLAEMIA
     Route: 048
  30. LIDODERM [Concomitant]
     Indication: POST HERPETIC NEURALGIA
     Dosage: PATCHES, 700MG, AS DIRECTED
  31. ROBAXIN [Concomitant]
     Indication: PRODUCT USED FOR UNKNOWN INDICATION
     Route: 048
  32. OXYCONTIN [Concomitant]
     Indication: PRODUCT USED FOR UNKNOWN INDICATION
     Dosage: 12 HOUR TABLET
     Route: 048
  33. PERCOCET [Concomitant]
     Indication: PAIN
     Dosage: 5-325 MG TAB; 1-2 TABLETS EVERY 4 HRS AS NEEDED
     Route: 048
  34. LYRICA [Concomitant]
     Indication: NEURALGIA
     Route: 048
  35. LYRICA [Concomitant]
     Indication: SPINAL CORD INJURY
  36. RISPERDAL [Concomitant]
     Indication: INSOMNIA
     Dosage: NIGHTLY
     Route: 048
  37. RISPERDAL [Concomitant]
     Indication: AGITATION

REACTIONS (7)
  - Non-small cell lung cancer metastatic [Fatal]
  - Respiratory failure [Unknown]
  - Renal failure acute [Unknown]
  - Pneumonia pseudomonal [Unknown]
  - Hyponatraemia [Recovered/Resolved]
  - Fall [Unknown]
  - Anaemia [Unknown]
